FAERS Safety Report 9973568 (Version 1)
Quarter: 2014Q1

REPORT INFORMATION
  Report Type: Spontaneous
  Country: US (occurrence: None)
  Receive Date: 20140218
  Receipt Date: 20140218
  Transmission Date: 20141002
  Serious: Yes (Other)
  Sender: FDA-Public Use
  Company Number: OMPQ-PR-1311S-1280

PATIENT
  Sex: Female

DRUGS (3)
  1. OMNIPAQUE [Suspect]
     Indication: PRODUCT USED FOR UNKNOWN INDICATION
  2. OMNIPAQUE [Suspect]
     Indication: DIAGNOSTIC PROCEDURE
  3. MAGNEVIST (GADOPENTETATE DIMEGLUMINE) [Concomitant]

REACTIONS (1)
  - Hypersensitivity [None]
